FAERS Safety Report 9664934 (Version 2)
Quarter: 2013Q4

REPORT INFORMATION
  Report Type: Spontaneous
  Country: US (occurrence: US)
  Receive Date: 20131101
  Receipt Date: 20131202
  Transmission Date: 20140711
  Serious: Yes (Other)
  Sender: FDA-Public Use
  Company Number: US-FRI-1000049898

PATIENT
  Age: 90 Year
  Sex: Male

DRUGS (8)
  1. NAMENDA XR [Suspect]
     Indication: SENILE DEMENTIA
     Dosage: 7MG
     Route: 048
     Dates: start: 20130911
  2. NAMENDA XR [Suspect]
     Dosage: 14MG
     Route: 048
  3. NAMENDA XR [Suspect]
     Dosage: 21MG
     Route: 048
  4. NAMENDA XR [Suspect]
     Indication: SENILE DEMENTIA
     Dosage: 28MG
     Route: 048
     Dates: end: 201310
  5. MVI [Concomitant]
  6. VINPOCETINE [Concomitant]
     Dosage: 10MG
  7. VITAMIN D3 [Concomitant]
  8. PREVAGEN [Concomitant]
     Dosage: ONE TABLET DAILY

REACTIONS (5)
  - Cognitive disorder [Recovered/Resolved]
  - Vision blurred [Recovered/Resolved]
  - Dizziness [Recovered/Resolved]
  - Confusional state [Recovered/Resolved]
  - Chest pain [Recovered/Resolved]
